FAERS Safety Report 5703887-5 (Version None)
Quarter: 2008Q2

REPORT INFORMATION
  Report Type: 
  Country: None (occurrence: None)
  Receive Date: 20080414
  Receipt Date: 20080331
  Transmission Date: 20081010
  Serious: Yes (Hospitalization)
  Sender: FDA-Public Use
  Company Number: HU-ELI_LILLY_AND_COMPANY-HU200801004508

PATIENT
  Age: 35 Year
  Sex: Male

DRUGS (5)
  1. ZYPREXA [Suspect]
     Indication: SCHIZOPHRENIA
     Dosage: 5 MG, EACH MORNING
     Route: 048
     Dates: start: 20070611
  2. ZYPREXA [Suspect]
     Dosage: 20 MG, EACH EVENING
     Route: 048
     Dates: start: 20070611
  3. AMISULPRIDE [Concomitant]
     Dosage: 400 MG, 3/D
     Route: 048
  4. KEMADRIN [Concomitant]
     Dosage: 2.5 MG, 3/D
     Route: 048
  5. FLUOXETINE [Concomitant]
     Dosage: 20 MG, EACH MORNING
     Route: 048

REACTIONS (1)
  - BENIGN PROSTATIC HYPERPLASIA [None]
